FAERS Safety Report 12667910 (Version 7)
Quarter: 2019Q3

REPORT INFORMATION
  Report Type: Spontaneous
  Country: US (occurrence: US)
  Receive Date: 20160819
  Receipt Date: 20190919
  Transmission Date: 20191004
  Serious: Yes (Life-Threatening, Hospitalization)
  Sender: FDA-Public Use
  Company Number: US-PFIZER INC-2016390347

PATIENT
  Age: 70 Year
  Sex: Female
  Weight: 108 kg

DRUGS (22)
  1. COREG [Concomitant]
     Active Substance: CARVEDILOL
     Dosage: 25 MG, UNK
  2. LYRICA [Suspect]
     Active Substance: PREGABALIN
     Indication: PAIN
     Dosage: UNK (AT 75 MG AND 100MG IN EVENING, NOW TAKING 75 MG MORN)
     Route: 048
  3. NIFEDIPINE. [Concomitant]
     Active Substance: NIFEDIPINE
     Indication: HYPERTENSION
     Dosage: 90 MG, 1X/DAY, PILL
     Route: 048
     Dates: start: 2011
  4. BUMEX [Concomitant]
     Active Substance: BUMETANIDE
     Indication: FLUID RETENTION
     Dosage: 1 MG, 1X/DAY
     Route: 048
  5. FUROSEMIDE. [Concomitant]
     Active Substance: FUROSEMIDE
     Dosage: 50 MG, (BEFORE NOW M-W-F)
  6. FISH OIL [Concomitant]
     Active Substance: FISH OIL
     Dosage: EVERY OTHER DAY
  7. INSULIN [Concomitant]
     Active Substance: INSULIN NOS
     Indication: DIABETES MELLITUS
     Dosage: 150 IU, DAILY
  8. NIFEDIPINE. [Concomitant]
     Active Substance: NIFEDIPINE
     Dosage: 30 MG, 1X/DAY
     Route: 048
  9. COREG [Concomitant]
     Active Substance: CARVEDILOL
     Dosage: 12.5 MG, 2X/DAY
  10. SIMVASTATIN. [Concomitant]
     Active Substance: SIMVASTATIN
     Dosage: 40 MG, 1X/DAY
  11. CINNAMON. [Concomitant]
     Active Substance: CINNAMON
     Dosage: UNK, 2X/DAY
  12. CETIRIZINE [Concomitant]
     Active Substance: CETIRIZINE HYDROCHLORIDE
     Dosage: UNK, 1X/DAY
  13. COZAAR [Concomitant]
     Active Substance: LOSARTAN POTASSIUM
     Dosage: 50 MG, UNK
  14. ALLOPURINOL. [Concomitant]
     Active Substance: ALLOPURINOL
     Dosage: 100 MG, 1X/DAY
  15. BABY ASPIRIN [Concomitant]
     Active Substance: ASPIRIN
     Dosage: 81 MG, UNK
  16. CLONIDINE. [Concomitant]
     Active Substance: CLONIDINE
     Dosage: 0.2 MG, WEEKLY (EVERY SUNDAY)
  17. LYRICA [Suspect]
     Active Substance: PREGABALIN
     Indication: BACK PAIN
     Dosage: 225 MG, DAILY, 75MG CAPSULE IN THE MORNING AND 150MG CAPSULE AT NIGHT
     Route: 048
  18. LYRICA [Suspect]
     Active Substance: PREGABALIN
     Indication: NEUROPATHY PERIPHERAL
     Dosage: 75 MG, 2X/DAY, IN THE MORNING AND NIGHT (TAKE 1 CAPSULE TWICE A DAY FOR 90 DAYS #180)
     Route: 048
  19. LISINOPRIL. [Concomitant]
     Active Substance: LISINOPRIL
     Dosage: 20 MG, 2X/DAY
  20. TYLENOL [Concomitant]
     Active Substance: ACETAMINOPHEN
     Dosage: 1000 MG, 2X/DAY (2 TABS)
  21. VITAMIN D [Concomitant]
     Active Substance: VITAMIN D NOS
     Dosage: UNK
  22. CRANBERRY. [Concomitant]
     Active Substance: CRANBERRY
     Dosage: UNK, 2X/DAY

REACTIONS (8)
  - Cardiac failure congestive [Not Recovered/Not Resolved]
  - Respiratory arrest [Recovered/Resolved]
  - Asthenia [Recovered/Resolved]
  - Gait disturbance [Recovered/Resolved]
  - Pneumonia [Recovered/Resolved]
  - Fluid retention [Recovered/Resolved]
  - Loss of consciousness [Unknown]
  - Renal failure [Recovered/Resolved]

NARRATIVE: CASE EVENT DATE: 2016
